FAERS Safety Report 8851403 (Version 6)
Quarter: 2015Q1

REPORT INFORMATION
  Report Type: Report from Study
  Country: CA (occurrence: CA)
  Receive Date: 20121022
  Receipt Date: 20150112
  Transmission Date: 20150721
  Serious: Yes (Hospitalization, Other)
  Sender: FDA-Public Use
  Company Number: CA-ROCHE-1146994

PATIENT
  Age: 77 Year
  Sex: Male
  Weight: 86.2 kg

DRUGS (13)
  1. RITUXAN [Suspect]
     Active Substance: RITUXIMAB
     Indication: RHEUMATOID ARTHRITIS
     Dosage: DAY 1 AND 15?DATE OF LAST INFUSION: 29/OCT/2014
     Route: 042
     Dates: start: 20100416
  2. ATACAND [Concomitant]
     Active Substance: CANDESARTAN CILEXETIL
  3. METHOTREXATE [Concomitant]
     Active Substance: METHOTREXATE
     Route: 048
  4. FOLIC ACID. [Concomitant]
     Active Substance: FOLIC ACID
  5. BISOPROLOL [Concomitant]
     Active Substance: BISOPROLOL
  6. ADVAIR HFA [Concomitant]
     Active Substance: FLUTICASONE PROPIONATE\SALMETEROL XINAFOATE
  7. METHYLPREDNISOLONE. [Concomitant]
     Active Substance: METHYLPREDNISOLONE
     Route: 042
     Dates: start: 20130416
  8. TYLENOL WITH CODEINE [Concomitant]
     Active Substance: ACETAMINOPHEN\CODEINE PHOSPHATE
  9. DEPO-MEDROL [Concomitant]
     Active Substance: METHYLPREDNISOLONE ACETATE
  10. ASPIRIN. [Concomitant]
     Active Substance: ASPIRIN
     Route: 048
  11. DIPHENHYDRAMINE HCL [Concomitant]
     Active Substance: DIPHENHYDRAMINE HYDROCHLORIDE
     Route: 048
     Dates: start: 20100416
  12. ATORVASTATIN [Concomitant]
     Active Substance: ATORVASTATIN
  13. ACETAMINOPHEN. [Concomitant]
     Active Substance: ACETAMINOPHEN
     Route: 048
     Dates: start: 20100416

REACTIONS (7)
  - Transient ischaemic attack [Recovered/Resolved]
  - Gastrointestinal haemorrhage [Recovered/Resolved]
  - Eczema [Unknown]
  - Chronic obstructive pulmonary disease [Not Recovered/Not Resolved]
  - Transient ischaemic attack [Recovered/Resolved]
  - Fall [Recovered/Resolved]
  - Rheumatoid arthritis [Unknown]

NARRATIVE: CASE EVENT DATE: 2012
